FAERS Safety Report 6683908-6 (Version None)
Quarter: 2010Q2

REPORT INFORMATION
  Report Type: 
  Country: None (occurrence: None)
  Receive Date: 20100416
  Receipt Date: 20100402
  Transmission Date: 20101027
  Serious: Yes (Other)
  Sender: FDA-Public Use
  Company Number: NL-ELI_LILLY_AND_COMPANY-NL201003007131

PATIENT
  Sex: Female
  Weight: 86 kg

DRUGS (6)
  1. FORTEO [Suspect]
     Indication: OSTEOPOROSIS
     Dosage: 20 UG, DAILY (1/D)
     Route: 058
     Dates: start: 20091228
  2. AZATHIOPRINE [Concomitant]
     Indication: HYPERTENSION
     Dosage: 50 MG, DAILY (1/D)
     Route: 048
  3. ACETYLSALICYLIC ACID [Concomitant]
     Indication: ANTICOAGULANT THERAPY
     Dosage: 100 MG, DAILY (1/D)
     Route: 048
  4. METOPROLOL TARTRATE [Concomitant]
     Indication: HYPERTENSION
     Dosage: 100 MG, DAILY (1/D)
     Route: 048
  5. TRAMADOL HCL [Concomitant]
     Indication: PAIN
     Dosage: 100 MG, DAILY (1/D)
     Route: 048
  6. LOSEC [Concomitant]
     Dosage: UNK, UNKNOWN
     Route: 048

REACTIONS (5)
  - BONE DISORDER [None]
  - DEVICE FAILURE [None]
  - FAECES HARD [None]
  - FRACTURE [None]
  - PAINFUL DEFAECATION [None]
